FAERS Safety Report 8717045 (Version 4)
Quarter: 2012Q4

REPORT INFORMATION
  Report Type: 
  Country: US (occurrence: US)
  Receive Date: 20120810
  Receipt Date: 20121017
  Transmission Date: 20130627
  Serious: Yes (Death)
  Sender: FDA-Public Use
  Company Number: US-PFIZER INC-2012191365

PATIENT
  Age: 68 Year
  Sex: Male
  Weight: 80.73 kg

DRUGS (3)
  1. REVATIO [Suspect]
     Indication: PULMONARY HYPERTENSION
     Dosage: 20 mg, 3x/day
  2. METOPROLOL [Concomitant]
     Indication: HYPERTENSION
     Dosage: UNK
  3. ACETYLSALICYLIC ACID [Concomitant]
     Indication: ANTIPLATELET THERAPY
     Dosage: 81 mg, 2x/day

REACTIONS (1)
  - Arrhythmia [Fatal]
